FAERS Safety Report 25943163 (Version 1)
Quarter: 2025Q4

REPORT INFORMATION
  Report Type: Spontaneous
  Country: US (occurrence: None)
  Receive Date: 20251020
  Receipt Date: 20251020
  Transmission Date: 20260118
  Serious: Yes (Hospitalization)
  Sender: FDA-CTU
  Company Number: None

PATIENT
  Age: 69 Year

DRUGS (22)
  1. MYCOPHENOLATE MOFETIL [Suspect]
     Active Substance: MYCOPHENOLATE MOFETIL
     Indication: Lung transplant
     Dosage: FREQUENCY : TWICE A DAY;?OTHER ROUTE : VIA FEEDING TUBE ;?
     Route: 050
     Dates: start: 20250806
  2. ALBUTEROL 0.083%(2.5MG/3ML) INH SOL, SODIUM CHLORIDE [Concomitant]
  3. SODIUM CHLORIDE 7% NEB SOL 60X4ML [Concomitant]
  4. ASPIRIN [Concomitant]
     Active Substance: ASPIRIN
  5. VALGANCICLOVIR 50MG/ML SOLN 88ML [Concomitant]
  6. ESOMEPRAZOLE MAGNESIUM 40MG DR GAPS [Concomitant]
  7. AMIODARONE [Concomitant]
     Active Substance: AMIODARONE
  8. AZITHROMYGIN 250MG TABLETS [Concomitant]
  9. ZINC SULFATE 220MG TABLETS [Concomitant]
  10. VITAMIN D3 50MGG TABLETS [Concomitant]
  11. MELATONIN 5MG TABLETS [Concomitant]
  12. PROGRAF [Suspect]
     Active Substance: TACROLIMUS
     Indication: Lung transplant
     Dosage: FREQUENCY : TWICE A DAY;?OTHER ROUTE : MIX AND TAKE 2 PACKETS VIA FEED TUBE ;?
     Route: 050
     Dates: start: 20250808
  13. SUCRALFATE 1 GM/10ML SUSPENSION [Concomitant]
  14. PREDNISONE [Concomitant]
     Active Substance: PREDNISONE
  15. LOKELMA 5GM PACKETS [Concomitant]
  16. POSACONAZOLE [Concomitant]
     Active Substance: POSACONAZOLE
  17. FUROSEMIDE [Concomitant]
     Active Substance: FUROSEMIDE
  18. DOXEPIN [Concomitant]
     Active Substance: DOXEPIN
  19. LOPERAMIDE [Concomitant]
     Active Substance: LOPERAMIDE
  20. ESZOPICLONE 1 MG TABLETS [Concomitant]
  21. GABAPENTIN [Concomitant]
     Active Substance: GABAPENTIN
  22. TRAMADOL HYDROCHLORIDE [Concomitant]
     Active Substance: TRAMADOL HYDROCHLORIDE

REACTIONS (1)
  - Palpitations [None]
